FAERS Safety Report 6524012-7 (Version None)
Quarter: 2009Q4

REPORT INFORMATION
  Report Type: 
  Country: None (occurrence: None)
  Receive Date: 20091230
  Receipt Date: 20091230
  Transmission Date: 20100525
  Serious: Yes (Other)
  Sender: FDA-Public Use
  Company Number: None

PATIENT
  Age: 29 Year
  Sex: Female
  Weight: 99.1 kg

DRUGS (1)
  1. ORTHO MICRONOR ONE TABLET DAILY DAILY [Suspect]
     Indication: CONTRACEPTION
     Dosage: ONE TABLET DAILY DAILY
     Dates: start: 20090701, end: 20091001

REACTIONS (6)
  - BLOOD HUMAN CHORIONIC GONADOTROPIN ABNORMAL [None]
  - DRUG EXPOSURE DURING PREGNANCY [None]
  - ECTOPIC PREGNANCY [None]
  - FEELING ABNORMAL [None]
  - PREGNANCY ON ORAL CONTRACEPTIVE [None]
  - VAGINAL HAEMORRHAGE [None]
